FAERS Safety Report 10595427 (Version 1)
Quarter: 2014Q4

REPORT INFORMATION
  Report Type: Spontaneous
  Country: US (occurrence: US)
  Receive Date: 20141120
  Receipt Date: 20141120
  Transmission Date: 20150529
  Serious: Yes (Hospitalization)
  Sender: FDA-Public Use
  Company Number: US-ASTRAZENECA-2014SE86586

PATIENT
  Age: 59 Year
  Sex: Male

DRUGS (4)
  1. BRILINTA [Suspect]
     Active Substance: TICAGRELOR
     Indication: CARDIOVASCULAR EVENT PROPHYLAXIS
     Route: 048
     Dates: start: 2014, end: 201411
  2. ZETIA [Concomitant]
     Active Substance: EZETIMIBE
     Indication: MYOCARDIAL INFARCTION
  3. BETA BLOCKER [Concomitant]
     Active Substance: UNSPECIFIED INGREDIENT
     Indication: MYOCARDIAL INFARCTION
  4. ACE INHIBITOR [Concomitant]
     Active Substance: UNSPECIFIED INGREDIENT
     Indication: MYOCARDIAL INFARCTION

REACTIONS (1)
  - Thrombosis in device [Unknown]

NARRATIVE: CASE EVENT DATE: 201411
